FAERS Safety Report 4317790-9 (Version None)
Quarter: 2004Q1

REPORT INFORMATION
  Report Type: 
  Country: None (occurrence: None)
  Receive Date: 20040312
  Receipt Date: 20040213
  Transmission Date: 20041129
  Serious: Yes (Hospitalization)
  Sender: FDA-Public Use
  Company Number: 2004SP000031

PATIENT
  Age: 85 Year
  Sex: Female
  Weight: 68.0396 kg

DRUGS (7)
  1. XOPENEX [Suspect]
     Indication: CHRONIC OBSTRUCTIVE AIRWAYS DISEASE
     Dosage: 1.25 MG; Q6H, INHALATION
     Route: 055
     Dates: start: 20031014, end: 20031019
  2. CARDIZEM [Concomitant]
  3. HYDROCHLOROTHIAZIDE [Concomitant]
  4. CALCIUM [Concomitant]
  5. TYLENOL (CAPLET) [Concomitant]
  6. CEFTIN [Concomitant]
  7. DECADRON [Concomitant]

REACTIONS (6)
  - BLOOD UREA INCREASED [None]
  - DIABETIC HYPEROSMOLAR COMA [None]
  - ENTEROCOCCAL INFECTION [None]
  - LOBAR PNEUMONIA [None]
  - NOCARDIOSIS [None]
  - SPUTUM CULTURE POSITIVE [None]
